FAERS Safety Report 9641448 (Version 1)
Quarter: 2013Q4

REPORT INFORMATION
  Report Type: Report from Study
  Country: US (occurrence: US)
  Receive Date: 20131023
  Receipt Date: 20131023
  Transmission Date: 20140711
  Serious: Yes (Other)
  Sender: FDA-Public Use
  Company Number: US-ABBVIE-13P-163-1079218-00

PATIENT
  Sex: Female

DRUGS (2)
  1. LUPRON DEPOT [Suspect]
     Indication: UTERINE LEIOMYOMA
     Dates: start: 201207, end: 201301
  2. LUPRON DEPOT [Suspect]
     Indication: MENORRHAGIA

REACTIONS (2)
  - Uterine leiomyoma [Recovered/Resolved]
  - Drug ineffective [Unknown]
